FAERS Safety Report 9188688 (Version 2)
Quarter: 2013Q4

REPORT INFORMATION
  Report Type: Spontaneous
  Country: US (occurrence: US)
  Receive Date: 20130325
  Receipt Date: 20131002
  Transmission Date: 20140711
  Serious: Yes (Other)
  Sender: FDA-Public Use
  Company Number: US-PFIZER INC-2013093062

PATIENT
  Age: 41 Year
  Sex: Male

DRUGS (2)
  1. CHANTIX [Suspect]
     Dosage: STARTER PACK AND 1MG CONTINUING MONTH PACK
     Dates: start: 20070606
  2. CHANTIX [Suspect]
     Dosage: UNK
     Dates: start: 20080101, end: 20080201

REACTIONS (1)
  - Suicide attempt [Unknown]
